FAERS Safety Report 6598714-0 (Version None)
Quarter: 2010Q1

REPORT INFORMATION
  Report Type: 
  Country: None (occurrence: None)
  Receive Date: 20100224
  Receipt Date: 20100105
  Transmission Date: 20100710
  Serious: Yes (Death)
  Sender: FDA-Public Use
  Company Number: US-TYCO HEALTHCARE/MALLINCKRODT-T201000479

PATIENT
  Age: 73 Year
  Sex: Female

DRUGS (7)
  1. BUTALBITAL ACETAMINOPHEN AND CAFFEINE [Suspect]
     Route: 048
  2. DOXEPIN HCL [Suspect]
     Route: 048
  3. ALPRAZOLAM [Suspect]
     Route: 048
  4. IRBESARTAN [Suspect]
     Route: 048
  5. EZETIMIBE [Suspect]
     Route: 048
  6. SALICYLATES NOS [Suspect]
     Route: 048
  7. CLOPIDOGREL [Suspect]
     Route: 048

REACTIONS (2)
  - CARDIO-RESPIRATORY ARREST [None]
  - COMPLETED SUICIDE [None]
